FAERS Safety Report 9619222 (Version 1)
Quarter: 2013Q4

REPORT INFORMATION
  Report Type: Report from Study
  Country: US (occurrence: US)
  Receive Date: 20131014
  Receipt Date: 20131014
  Transmission Date: 20140711
  Serious: Yes (Death)
  Sender: FDA-Public Use
  Company Number: US-SA-2013SA098679

PATIENT
  Age: 58 Year
  Sex: Male
  Weight: 83.7 kg

DRUGS (6)
  1. ELOXATIN [Suspect]
     Indication: ADENOCARCINOMA
     Route: 042
     Dates: start: 20121008, end: 20130121
  2. FOLINIC ACID [Suspect]
     Route: 042
     Dates: start: 20121008, end: 20130121
  3. 5 FU [Suspect]
     Route: 042
     Dates: start: 20121008, end: 20130121
  4. BLINDED THERAPY [Suspect]
     Route: 042
     Dates: start: 20121008, end: 20130121
  5. WARFARIN [Concomitant]
  6. LEUCOVORIN CALCIUM [Concomitant]
     Dates: start: 20121008, end: 20130121

REACTIONS (1)
  - Acute respiratory distress syndrome [Fatal]
